FAERS Safety Report 5738096-7 (Version None)
Quarter: 2008Q2

REPORT INFORMATION
  Report Type: 
  Country: None (occurrence: None)
  Receive Date: 20080509
  Receipt Date: 20070508
  Transmission Date: 20081010
  Serious: Yes (Other)
  Sender: FDA-Public Use
  Company Number: HQWYE120610MAY07

PATIENT
  Age: 18 Year
  Sex: Female
  Weight: 59.02 kg

DRUGS (2)
  1. PROTONIX [Suspect]
     Indication: GASTROOESOPHAGEAL REFLUX DISEASE
     Dosage: 40 MG 1X PER 1 TOT, INTRAVENOUS
     Route: 042
     Dates: start: 20070508, end: 20070508
  2. BENADRYL [Concomitant]

REACTIONS (3)
  - DRUG ADMINISTRATION ERROR [None]
  - RASH [None]
  - TREMOR [None]
